FAERS Safety Report 23207915 (Version 2)
Quarter: 2023Q4

REPORT INFORMATION
  Report Type: Report from Study
  Country: US (occurrence: US)
  Receive Date: 20231121
  Receipt Date: 20231127
  Transmission Date: 20240110
  Serious: Yes (Other)
  Sender: FDA-Public Use
  Company Number: US-DECIPHERA PHARMACEUTICALS LLC-2023US001000

PATIENT
  Age: 84 Year
  Sex: Female

DRUGS (3)
  1. QINLOCK [Suspect]
     Active Substance: RIPRETINIB
     Indication: Gastrointestinal stromal tumour
     Dosage: 150 MILLIGRAM, QD
     Route: 048
     Dates: start: 20221109, end: 20231003
  2. QINLOCK [Suspect]
     Active Substance: RIPRETINIB
     Dosage: 150 MILLIGRAM, QOD (THREE 50MG TABLETS ONE DAY AND FOUR 50MG TABLETS ALTERNATING THE NEXT DAY)
     Route: 048
     Dates: start: 202311
  3. QINLOCK [Suspect]
     Active Substance: RIPRETINIB
     Dosage: 200 MILLIGRAM, QOD (THREE 50MG TABLETS ONE DAY AND FOUR 50MG TABLETS ALTERNATING THE NEXT DAY)
     Route: 048
     Dates: start: 202311

REACTIONS (6)
  - Anaemia [Unknown]
  - Disease progression [Unknown]
  - Haemoptysis [Unknown]
  - Mobility decreased [Unknown]
  - Extra dose administered [Unknown]
  - Inappropriate schedule of product administration [Unknown]

NARRATIVE: CASE EVENT DATE: 20231101
